FAERS Safety Report 18570363 (Version 1)
Quarter: 2020Q4

REPORT INFORMATION
  Report Type: Report from Study
  Country: US (occurrence: US)
  Receive Date: 20201202
  Receipt Date: 20201202
  Transmission Date: 20210114
  Serious: Yes (Other)
  Sender: FDA-Public Use
  Company Number: US-GW PHARMA-201811USGW0518

PATIENT

DRUGS (9)
  1. CITALOPRAM [Concomitant]
     Active Substance: CITALOPRAM HYDROBROMIDE
     Indication: ANXIETY
     Dosage: 20 MILLIGRAM, QD
     Route: 048
     Dates: start: 2016
  2. ASPIRIN (E.C.) [Concomitant]
     Active Substance: ASPIRIN
     Indication: TORTICOLLIS
     Dosage: 325 MILLIGRAM, SINGLE
     Route: 048
     Dates: start: 20181025, end: 20181025
  3. EPIDIOLEX [Suspect]
     Active Substance: CANNABIDIOL
     Indication: TUBEROUS SCLEROSIS COMPLEX
     Dosage: 25.1MG/KG, 1850 MILLIGRAM, BID
     Route: 048
     Dates: start: 20180925, end: 20181103
  4. ZARONTIN [Concomitant]
     Active Substance: ETHOSUXIMIDE
     Indication: EPILEPSY
     Dosage: 500 MILLIGRAM, BID
     Route: 048
     Dates: start: 2015
  5. APTIOM [Concomitant]
     Active Substance: ESLICARBAZEPINE ACETATE
     Indication: EPILEPSY
     Dosage: 1200 MILLIGRAM, QD (400MG QAM AND 800MG QPM)
     Route: 048
     Dates: start: 201802
  6. ONFI [Concomitant]
     Active Substance: CLOBAZAM
     Indication: EPILEPSY
     Dosage: 20 MILLIGRAM, BID
     Route: 048
     Dates: start: 20170213
  7. VIMPAT [Concomitant]
     Active Substance: LACOSAMIDE
     Indication: EPILEPSY
     Dosage: 900 MILLIGRAM, QD (400 MILLIGRAM QAM AND 500 MILLIGRAM QPM)
     Route: 048
     Dates: start: 2010
  8. ATIVAN [Concomitant]
     Active Substance: LORAZEPAM
     Indication: EPILEPSY
     Dosage: 1 MILLIGRAM, PRN
     Route: 048
     Dates: start: 2014
  9. GOLD BOND ANTI-ITCH [Concomitant]
     Indication: TINEA INFECTION
     Dosage: 1 APPLICATION, PRN
     Route: 061
     Dates: start: 20181025

REACTIONS (1)
  - Rash [Recovered/Resolved]

NARRATIVE: CASE EVENT DATE: 20181101
